FAERS Safety Report 25356522 (Version 1)
Quarter: 2025Q2

REPORT INFORMATION
  Report Type: Other
  Country: FR (occurrence: FR)
  Receive Date: 20250526
  Receipt Date: 20250526
  Transmission Date: 20250716
  Serious: Yes (Other)
  Sender: ANI
  Company Number: FR-ANIPHARMA-022868

PATIENT
  Age: 66 Year
  Sex: Male

DRUGS (12)
  1. LEUCOVORIN [Suspect]
     Active Substance: LEUCOVORIN\LEUCOVORIN CALCIUM
     Indication: Ductal adenocarcinoma of pancreas
  2. FLUOROURACIL [Concomitant]
     Active Substance: FLUOROURACIL
     Indication: Ductal adenocarcinoma of pancreas
  3. IRINOTECAN [Concomitant]
     Active Substance: IRINOTECAN
     Indication: Ductal adenocarcinoma of pancreas
  4. OXALIPLATIN [Concomitant]
     Active Substance: OXALIPLATIN
     Indication: Ductal adenocarcinoma of pancreas
  5. TIPIRACIL HYDROCHLORIDE\TRIFLURIDINE [Concomitant]
     Active Substance: TIPIRACIL HYDROCHLORIDE\TRIFLURIDINE
     Indication: Metastases to lung
     Dates: start: 202111
  6. GEMCITABINE [Concomitant]
     Active Substance: GEMCITABINE
     Indication: Metastases to peritoneum
     Dates: start: 202407
  7. PACLITAXEL [Concomitant]
     Active Substance: PACLITAXEL
     Indication: Metastases to peritoneum
     Dates: start: 202406
  8. LEUCOVORIN [Suspect]
     Active Substance: LEUCOVORIN\LEUCOVORIN CALCIUM
     Indication: Metastases to lung
  9. FLUOROURACIL [Concomitant]
     Active Substance: FLUOROURACIL
     Indication: Metastases to lung
  10. IRINOTECAN [Concomitant]
     Active Substance: IRINOTECAN
     Indication: Metastases to lung
  11. OXALIPLATIN [Concomitant]
     Active Substance: OXALIPLATIN
     Indication: Metastases to lung
  12. TIPIRACIL HYDROCHLORIDE\TRIFLURIDINE [Concomitant]
     Active Substance: TIPIRACIL HYDROCHLORIDE\TRIFLURIDINE
     Indication: Ductal adenocarcinoma of pancreas
     Dates: start: 202111

REACTIONS (1)
  - Neuropathy peripheral [Unknown]
